FAERS Safety Report 15124832 (Version 1)
Quarter: 2018Q3

REPORT INFORMATION
  Report Type: Spontaneous
  Country: US (occurrence: US)
  Receive Date: 20180710
  Receipt Date: 20180710
  Transmission Date: 20181010
  Serious: Yes (Disabling)
  Sender: FDA-Public Use
  Company Number: US-LPDUSPRD-20181201

PATIENT

DRUGS (3)
  1. CLONIDINE HYDROCHLORIDE INJECTION, USP (0730?01) [Suspect]
     Active Substance: CLONIDINE HYDROCHLORIDE
     Dosage: UNKNOWN
     Route: 065
  2. TORADOL [Suspect]
     Active Substance: KETOROLAC TROMETHAMINE
     Dosage: UNKNOWN
     Route: 065
  3. TIZANIDINE. [Suspect]
     Active Substance: TIZANIDINE
     Dosage: UNKNOWN
     Route: 065

REACTIONS (5)
  - Injection site injury [Recovered/Resolved with Sequelae]
  - Drug interaction [Recovered/Resolved with Sequelae]
  - Chronic inflammatory demyelinating polyradiculoneuropathy [Recovered/Resolved with Sequelae]
  - Muscular weakness [Recovered/Resolved with Sequelae]
  - Nervous system disorder [Recovered/Resolved with Sequelae]
